FAERS Safety Report 5210604-4 (Version None)
Quarter: 2007Q1

REPORT INFORMATION
  Report Type: 
  Country: None (occurrence: None)
  Receive Date: 20070117
  Receipt Date: 20070109
  Transmission Date: 20070707
  Serious: Yes (Hospitalization)
  Sender: FDA-Public Use
  Company Number: JP-MERCK-0701USA01258

PATIENT
  Sex: Female

DRUGS (6)
  1. PEPCID [Suspect]
     Route: 065
     Dates: start: 20060101, end: 20070101
  2. [THERAPY UNSPECIFIED] [Suspect]
     Route: 048
  3. MUCOSOLVAN [Concomitant]
     Route: 048
  4. BIOFERMIN [Concomitant]
     Route: 048
  5. SELBEX [Concomitant]
     Route: 048
  6. THYRADIN-S [Concomitant]
     Route: 048

REACTIONS (2)
  - BLOOD CREATININE INCREASED [None]
  - BLOOD UREA INCREASED [None]
